FAERS Safety Report 23008147 (Version 8)
Quarter: 2024Q2

REPORT INFORMATION
  Report Type: Report from Study
  Country: US (occurrence: US)
  Receive Date: 20230929
  Receipt Date: 20240430
  Transmission Date: 20240716
  Serious: Yes (Hospitalization, Other)
  Sender: FDA-Public Use
  Company Number: US-INSMED INCORPORATED-2023-03161-US

PATIENT
  Sex: Female

DRUGS (4)
  1. ARIKAYCE [Suspect]
     Active Substance: AMIKACIN
     Indication: Mycobacterium avium complex infection
     Dosage: 590 MILLIGRAM, QD
     Route: 055
     Dates: start: 20230822, end: 202308
  2. ARIKAYCE [Suspect]
     Active Substance: AMIKACIN
     Indication: Mycobacterium abscessus infection
     Dosage: 590 MILLIGRAM, UNK
     Route: 055
     Dates: start: 202309
  3. ARIKAYCE [Suspect]
     Active Substance: AMIKACIN
     Dosage: UNK, UNK
     Route: 055
  4. LINEZOLID [Suspect]
     Active Substance: LINEZOLID
     Indication: Product used for unknown indication
     Dosage: UNK
     Route: 065
     Dates: end: 2023

REACTIONS (29)
  - Oxygen saturation decreased [Recovering/Resolving]
  - Hypertension [Recovering/Resolving]
  - Pulmonary mass [Not Recovered/Not Resolved]
  - Procedural hypertension [Recovering/Resolving]
  - Cardiac failure congestive [Unknown]
  - Pulmonary oedema [Recovering/Resolving]
  - Anaemia [Recovered/Resolved]
  - Pneumonia [Not Recovered/Not Resolved]
  - Neuropathy peripheral [Not Recovered/Not Resolved]
  - Dyspnoea [Recovering/Resolving]
  - Haemoptysis [Recovered/Resolved]
  - Pneumonitis [Not Recovered/Not Resolved]
  - Inflammation [Unknown]
  - Infection [Unknown]
  - Sinus disorder [Unknown]
  - Respiratory disorder [Unknown]
  - Computerised tomogram abnormal [Unknown]
  - Blood test abnormal [Not Recovered/Not Resolved]
  - Productive cough [Recovered/Resolved]
  - Productive cough [Not Recovered/Not Resolved]
  - Weight decreased [Recovering/Resolving]
  - Nausea [Not Recovered/Not Resolved]
  - Illness [Not Recovered/Not Resolved]
  - Feeling abnormal [Unknown]
  - Unevaluable event [Not Recovered/Not Resolved]
  - Malaise [Recovering/Resolving]
  - Dysphonia [Unknown]
  - Fatigue [Not Recovered/Not Resolved]
  - Ill-defined disorder [Not Recovered/Not Resolved]

NARRATIVE: CASE EVENT DATE: 20230101
